FAERS Safety Report 7142022-6 (Version None)
Quarter: 2010Q4

REPORT INFORMATION
  Report Type: 
  Country: None (occurrence: None)
  Receive Date: 20101207
  Receipt Date: 20101202
  Transmission Date: 20110411
  Serious: Yes (Other)
  Sender: FDA-Public Use
  Company Number: A0892687A

PATIENT
  Sex: Female
  Weight: 61.4 kg

DRUGS (3)
  1. MEPRON [Suspect]
     Dosage: 5ML TWICE PER DAY
     Route: 048
  2. ESTRADERM [Concomitant]
     Indication: HORMONE REPLACEMENT THERAPY
     Dosage: 100MCG TWO TIMES PER WEEK
     Route: 065
     Dates: start: 20010101
  3. HIV TREATMENTS (UNSPECIFIED) [Concomitant]
     Indication: HIV INFECTION
     Route: 065

REACTIONS (5)
  - DRUG INEFFECTIVE [None]
  - DYSPNOEA [None]
  - PALPITATIONS [None]
  - PNEUMOCYSTIS JIROVECI PNEUMONIA [None]
  - PRODUCT QUALITY ISSUE [None]
